FAERS Safety Report 24962093 (Version 1)
Quarter: 2025Q1

REPORT INFORMATION
  Report Type: Report from Study
  Country: US (occurrence: US)
  Receive Date: 20250212
  Receipt Date: 20250212
  Transmission Date: 20250408
  Serious: Yes (Hospitalization, Other)
  Sender: GILEAD
  Company Number: US-GILEAD-2025-0703440

PATIENT
  Sex: Female

DRUGS (18)
  1. AZTREONAM LYSINE [Suspect]
     Active Substance: AZTREONAM LYSINE
     Indication: Cystic fibrosis
     Dosage: 75 MG, TID
     Route: 065
  2. BETHKIS [Concomitant]
     Active Substance: TOBRAMYCIN
  3. PULMOZYME [Concomitant]
     Active Substance: DORNASE ALFA
  4. FLUCONAZOLE [Concomitant]
     Active Substance: FLUCONAZOLE
  5. DIETARY SUPPLEMENT [Concomitant]
     Active Substance: DIETARY SUPPLEMENT
  6. ELECTROLYTE SOLUTIONS [ELECTROLYTES NOS] [Concomitant]
  7. CLONIDINE [Concomitant]
     Active Substance: CLONIDINE
  8. SYNTHROID [Concomitant]
     Active Substance: LEVOTHYROXINE SODIUM
  9. DIASTAT [Concomitant]
     Active Substance: DIAZEPAM
  10. DIAZEPAM [Concomitant]
     Active Substance: DIAZEPAM
  11. BANZEL [Concomitant]
     Active Substance: RUFINAMIDE
  12. KEPPRA [Concomitant]
     Active Substance: LEVETIRACETAM
  13. CLONAZEPAM [Concomitant]
     Active Substance: CLONAZEPAM
  14. POLYETHYLENE GLYCOL 3350 [Concomitant]
     Active Substance: POLYETHYLENE GLYCOL 3350
  15. SINGULAIR [Concomitant]
     Active Substance: MONTELUKAST SODIUM
  16. XOPENEX HFA [Concomitant]
     Active Substance: LEVALBUTEROL TARTRATE
  17. PULMICORT TURBUHALER [Concomitant]
     Active Substance: BUDESONIDE
  18. TOBI [Concomitant]
     Active Substance: TOBRAMYCIN

REACTIONS (1)
  - Pneumonia [Unknown]
